FAERS Safety Report 8426280-3 (Version None)
Quarter: 2012Q2

REPORT INFORMATION
  Report Type: 
  Country: None (occurrence: None)
  Receive Date: 20120611
  Receipt Date: 20120528
  Transmission Date: 20120825
  Serious: Yes (Death, Hospitalization)
  Sender: FDA-Public Use
  Company Number: DE-RANBAXY-2012US-57055

PATIENT

DRUGS (9)
  1. PANTOPRAZOLE [Suspect]
     Dosage: UNK
  2. ENOXAPARIN [Concomitant]
     Dosage: UNK
     Route: 058
  3. PANTOPRAZOLE [Suspect]
     Dosage: 40 MG, QD
     Route: 058
  4. CLOPIDOGREL [Concomitant]
     Indication: ACUTE CORONARY SYNDROME
     Dosage: UNK
     Route: 065
  5. ENOXAPARIN [Concomitant]
     Indication: ACUTE CORONARY SYNDROME
     Dosage: 40 MG, BID
     Route: 058
  6. PANTOPRAZOLE [Suspect]
     Indication: PROPHYLAXIS
     Dosage: 40 MG, BID
     Route: 048
  7. TIROFIBAN HYDROCHLORIDE [Concomitant]
     Indication: ACUTE CORONARY SYNDROME
     Dosage: UNK
     Route: 042
  8. ASPIRIN [Concomitant]
     Indication: ACUTE CORONARY SYNDROME
     Dosage: UNK
     Route: 065
  9. TIROFIBAN HYDROCHLORIDE [Concomitant]
     Dosage: UNK
     Route: 042

REACTIONS (1)
  - MYOCARDIAL INFARCTION [None]
